FAERS Safety Report 25591386 (Version 1)
Quarter: 2025Q3

REPORT INFORMATION
  Report Type: Spontaneous
  Country: US (occurrence: None)
  Receive Date: 20250721
  Receipt Date: 20250721
  Transmission Date: 20251020
  Serious: No
  Sender: FDA-CTU
  Company Number: None

PATIENT
  Age: 76 Year
  Sex: Female
  Weight: 70.31 kg

DRUGS (8)
  1. TRIAMCINOLONE ACETONIDE [Suspect]
     Active Substance: TRIAMCINOLONE ACETONIDE
     Dosage: 0IL 3 X PER DAY ON THE SKIN
     Route: 062
     Dates: start: 20250227, end: 20250228
  2. ASPIRIN [Concomitant]
     Active Substance: ASPIRIN
  3. METOPROL ER 100 MG [Concomitant]
  4. EZETIMBE 10 MG [Concomitant]
  5. ROSUVASTATIN [Concomitant]
     Active Substance: ROSUVASTATIN
  6. PROBIOTICS NOS [Concomitant]
     Active Substance: PROBIOTICS NOS
  7. CALCIUM [Concomitant]
     Active Substance: CALCIUM
  8. VITAMIN D3 [Concomitant]
     Active Substance: CHOLECALCIFEROL

REACTIONS (9)
  - Contraindicated product prescribed [None]
  - Dizziness [None]
  - Application site pain [None]
  - Application site irritation [None]
  - Blister [None]
  - Application site exfoliation [None]
  - Haemorrhage [None]
  - Fall [None]
  - Limb injury [None]
